FAERS Safety Report 9717484 (Version 3)
Quarter: 2015Q3

REPORT INFORMATION
  Report Type: Spontaneous
  Country: US (occurrence: US)
  Receive Date: 20131127
  Receipt Date: 20150803
  Transmission Date: 20151125
  Serious: No
  Sender: FDA-Public Use
  Company Number: US-GILEAD-2008-0019510

PATIENT
  Age: 70 Year
  Sex: Female
  Weight: 84.82 kg

DRUGS (12)
  1. DEMADEX [Concomitant]
     Active Substance: TORSEMIDE
  2. LETAIRIS [Suspect]
     Active Substance: AMBRISENTAN
  3. VENTAVIS [Concomitant]
     Active Substance: ILOPROST
  4. PERCOCET [Concomitant]
     Active Substance: ACETAMINOPHEN\OXYCODONE HYDROCHLORIDE
  5. LETAIRIS [Suspect]
     Active Substance: AMBRISENTAN
     Route: 048
     Dates: end: 20090107
  6. ZAROXOLYN [Concomitant]
     Active Substance: METOLAZONE
  7. ALLOPURINOL. [Concomitant]
     Active Substance: ALLOPURINOL
  8. ZEMPLAR [Concomitant]
     Active Substance: PARICALCITOL
  9. K-DUR [Concomitant]
     Active Substance: POTASSIUM CHLORIDE
  10. COUMADIN [Concomitant]
     Active Substance: WARFARIN SODIUM
  11. LETAIRIS [Suspect]
     Active Substance: AMBRISENTAN
     Indication: PULMONARY ARTERIAL HYPERTENSION
     Route: 048
     Dates: start: 20071119
  12. TOPROL XL [Concomitant]
     Active Substance: METOPROLOL SUCCINATE

REACTIONS (2)
  - Peripheral swelling [Not Recovered/Not Resolved]
  - Dyspnoea [Not Recovered/Not Resolved]

NARRATIVE: CASE EVENT DATE: 20081103
